FAERS Safety Report 4539710-4 (Version None)
Quarter: 2004Q4

REPORT INFORMATION
  Report Type: 
  Country: None (occurrence: None)
  Receive Date: 20041228
  Receipt Date: 20041221
  Transmission Date: 20050328
  Serious: Yes (Hospitalization)
  Sender: FDA-Public Use
  Company Number: CA-JNJFOC-20041206188

PATIENT
  Sex: Female
  Weight: 77.8 kg

DRUGS (5)
  1. DURAGESIC [Suspect]
     Indication: DRUG USE FOR UNKNOWN INDICATION
     Route: 062
     Dates: start: 20040806
  2. XYOTAX [Concomitant]
     Route: 042
     Dates: start: 20040727
  3. XYOTAX [Concomitant]
     Indication: NON-SMALL CELL LUNG CANCER STAGE IV
     Dosage: 210 MG/M2
     Route: 042
     Dates: start: 20040727
  4. MORPHINE [Concomitant]
     Indication: DRUG USE FOR UNKNOWN INDICATION
     Dosage: 20 MG TO 30 MG
     Route: 049
     Dates: start: 20040804, end: 20040815
  5. HYDROMORPHONE [Concomitant]

REACTIONS (4)
  - CLOSTRIDIUM COLITIS [None]
  - DYSPNOEA [None]
  - PULMONARY EMBOLISM [None]
  - VOMITING [None]
